FAERS Safety Report 17187516 (Version 3)
Quarter: 2020Q1

REPORT INFORMATION
  Report Type: Spontaneous
  Country: US (occurrence: US)
  Receive Date: 20191220
  Receipt Date: 20200221
  Transmission Date: 20200409
  Serious: No
  Sender: FDA-Public Use
  Company Number: US-NEUROCRINE BIOSCIENCES INC.-2019NBI03820

PATIENT
  Sex: Female

DRUGS (3)
  1. INGREZZA [Suspect]
     Active Substance: VALBENAZINE
     Route: 048
     Dates: start: 2019
  2. INGREZZA [Suspect]
     Active Substance: VALBENAZINE
     Indication: TARDIVE DYSKINESIA
     Route: 048
     Dates: start: 20191118, end: 20191125
  3. INGREZZA [Suspect]
     Active Substance: VALBENAZINE
     Indication: TIC
     Route: 048
     Dates: start: 20191126, end: 2019

REACTIONS (6)
  - Musculoskeletal stiffness [Unknown]
  - Sedation [Unknown]
  - Tremor [Unknown]
  - Insomnia [Unknown]
  - Somnolence [Not Recovered/Not Resolved]
  - Drug ineffective for unapproved indication [Unknown]

NARRATIVE: CASE EVENT DATE: 2019
